FAERS Safety Report 7738228-5 (Version None)
Quarter: 2011Q3

REPORT INFORMATION
  Report Type: 
  Country: None (occurrence: None)
  Receive Date: 20110908
  Receipt Date: 20110829
  Transmission Date: 20111222
  Serious: Yes (Hospitalization)
  Sender: FDA-Public Use
  Company Number: BR-PFIZER INC-2011072990

PATIENT
  Age: 81 Year
  Sex: Female

DRUGS (6)
  1. AMLODIPINE BESYLATE [Suspect]
     Indication: HYPERTENSION
     Dosage: 5 MG, 1X/DAY
     Route: 048
     Dates: start: 20080301, end: 20110101
  2. HYDRALAZINE HCL [Suspect]
     Indication: HYPERTENSION
     Dosage: 50 MG, DAILY
     Route: 048
     Dates: start: 20080301, end: 20110101
  3. ACETYLSALICYLIC ACID SRT [Suspect]
     Dosage: 100 MG, DAILY
     Route: 048
     Dates: start: 20080301, end: 20110101
  4. OMEPRAZOLE [Concomitant]
     Route: 065
  5. BENICAR [Suspect]
     Indication: HYPERTENSION
     Dosage: 20 MG, 1X/DAY
     Route: 048
     Dates: start: 20080301, end: 20110101
  6. AMILORIDE HCL AND HYDROCHLOROTHIAZIDE [Suspect]
     Indication: HYPERTENSION
     Dosage: 5MG/50MG, ONCE A DAY
     Route: 048
     Dates: start: 20080301

REACTIONS (3)
  - ANAEMIA [None]
  - HYPOTENSION [None]
  - GASTROINTESTINAL HAEMORRHAGE [None]
